FAERS Safety Report 9518072 (Version 1)
Quarter: 2013Q3

REPORT INFORMATION
  Report Type: Spontaneous
  Country: US (occurrence: US)
  Receive Date: 20130912
  Receipt Date: 20130912
  Transmission Date: 20140515
  Serious: Yes (Other)
  Sender: FDA-Public Use
  Company Number: US-GLENMARK GENERICS INC.-2013GMK006740

PATIENT
  Age: 40 Year
  Sex: Female

DRUGS (4)
  1. TOPIRAMATE [Suspect]
     Indication: MIGRAINE
     Dosage: 1 DF, HS FOR FIRST WEEK
     Route: 048
     Dates: start: 20130823
  2. TOPIRAMATE [Suspect]
     Dosage: 2 DF, THE SECOND WEEK
     Route: 048
     Dates: end: 20130901
  3. IMITREX [Concomitant]
     Indication: MIGRAINE
     Dosage: UNK, PRN
  4. AMITIZA [Concomitant]
     Indication: ABDOMINAL PAIN UPPER
     Dosage: UNK, PRN

REACTIONS (7)
  - Blindness [Recovering/Resolving]
  - Myopia [Recovering/Resolving]
  - Eye pain [Recovering/Resolving]
  - Eye irritation [Recovering/Resolving]
  - Eye swelling [Recovering/Resolving]
  - Vision blurred [Recovering/Resolving]
  - Nephrolithiasis [Not Recovered/Not Resolved]
